FAERS Safety Report 9178552 (Version 1)
Quarter: 2013Q1

REPORT INFORMATION
  Report Type: Spontaneous
  Country: US (occurrence: US)
  Receive Date: 20130321
  Receipt Date: 20130321
  Transmission Date: 20140127
  Serious: Yes (Other)
  Sender: FDA-Public Use
  Company Number: US-ASTRAZENECA-2013SE16683

PATIENT
  Age: 57 Year
  Sex: Female
  Weight: 79.4 kg

DRUGS (12)
  1. NEXIUM [Suspect]
     Indication: GASTROOESOPHAGEAL REFLUX DISEASE
     Route: 048
     Dates: start: 2009, end: 201211
  2. METOPROLOL TARTRATE [Suspect]
     Indication: HYPERTENSION
     Route: 048
     Dates: start: 2009
  3. OMEPRAZOLE [Suspect]
     Indication: GASTROOESOPHAGEAL REFLUX DISEASE
     Dosage: DAILY
     Route: 048
     Dates: start: 2008
  4. OMEPRAZOLE [Suspect]
     Indication: GASTROOESOPHAGEAL REFLUX DISEASE
     Route: 048
     Dates: start: 201211
  5. CRESTOR [Suspect]
     Indication: BLOOD CHOLESTEROL INCREASED
     Route: 048
  6. LEVOTHYROXINE [Concomitant]
     Indication: THYROID DISORDER
     Route: 048
  7. ACTOS [Concomitant]
     Route: 048
     Dates: start: 2010
  8. METFORMIN [Concomitant]
     Indication: DIABETES MELLITUS
     Route: 048
  9. FAMOTIDINE [Concomitant]
     Route: 048
     Dates: start: 201211
  10. CYMBALTA [Concomitant]
     Indication: FIBROMYALGIA
     Route: 048
     Dates: start: 2008
  11. FLECAINIDE [Concomitant]
     Indication: HEART RATE IRREGULAR
     Route: 048
     Dates: start: 2009
  12. LANTUS [Concomitant]
     Indication: DIABETES MELLITUS
     Route: 058
     Dates: start: 2011

REACTIONS (10)
  - Heart rate irregular [Unknown]
  - Choking [Unknown]
  - Dyspnoea [Unknown]
  - Hypertension [Unknown]
  - Blood cholesterol increased [Unknown]
  - Burning sensation [Unknown]
  - Gastrooesophageal reflux disease [Unknown]
  - Regurgitation [Unknown]
  - Fibromyalgia [Unknown]
  - Drug ineffective [Unknown]
